FAERS Safety Report 5328667-4 (Version None)
Quarter: 2007Q2

REPORT INFORMATION
  Report Type: 
  Country: None (occurrence: None)
  Receive Date: 20070518
  Receipt Date: 20070515
  Transmission Date: 20071010
  Serious: Yes (Death, Hospitalization, Disabling)
  Sender: FDA-Public Use
  Company Number: A0648915A

PATIENT
  Age: 14 Year
  Sex: Male
  Weight: 45.4 kg

DRUGS (8)
  1. NELARABINE [Suspect]
     Dosage: 650MGM2 UNKNOWN
     Route: 042
     Dates: start: 20061026, end: 20061030
  2. VORICONAZOLE [Concomitant]
     Indication: INFECTION PROPHYLAXIS
     Route: 048
     Dates: start: 20061025, end: 20061114
  3. VIRAMUNE [Concomitant]
     Dosage: 200MG TWICE PER DAY
     Route: 048
     Dates: start: 20061025, end: 20061203
  4. NEXIUM [Concomitant]
     Dosage: 40MG TWICE PER DAY
     Route: 048
     Dates: start: 20061025
  5. NEURONTIN [Concomitant]
     Dosage: 300MG ALTERNATE DAYS
     Route: 048
  6. TRUVADA [Concomitant]
     Dosage: 1TAB PER DAY
     Route: 048
     Dates: start: 20061025
  7. PREDNISONE TAB [Concomitant]
     Dosage: 20MG TWICE PER DAY
     Route: 048
     Dates: start: 20061025
  8. KYTRIL [Concomitant]

REACTIONS (7)
  - DEATH [None]
  - GAIT DISTURBANCE [None]
  - INCOHERENT [None]
  - LEUKAEMIA RECURRENT [None]
  - NEUROTOXICITY [None]
  - SOMNOLENCE [None]
  - SPEECH DISORDER [None]
